FAERS Safety Report 7638048-6 (Version None)
Quarter: 2011Q3

REPORT INFORMATION
  Report Type: 
  Country: None (occurrence: None)
  Receive Date: 20110727
  Receipt Date: 20110725
  Transmission Date: 20111222
  Serious: Yes (Other)
  Sender: FDA-Public Use
  Company Number: US-BAYER-2011-064586

PATIENT
  Age: 53 Year
  Sex: Female

DRUGS (2)
  1. DROSPIRENONE AND ETHINYL ESTRADIOL [Suspect]
     Dosage: UNK
     Dates: start: 20081001, end: 20100701
  2. YASMIN [Suspect]
     Dosage: UNK
     Dates: start: 20040901, end: 20080901

REACTIONS (1)
  - PULMONARY EMBOLISM [None]
